FAERS Safety Report 8349737-2 (Version None)
Quarter: 2012Q2

REPORT INFORMATION
  Report Type: 
  Country: None (occurrence: None)
  Receive Date: 20120510
  Receipt Date: 20120502
  Transmission Date: 20120825
  Serious: Yes (Death, Other)
  Sender: FDA-Public Use
  Company Number: IN-GENZYME-CERZ-1002470

PATIENT
  Sex: Male
  Weight: 11 kg

DRUGS (2)
  1. CEREZYME [Suspect]
     Dosage: 1200 U, Q4W
     Route: 042
     Dates: start: 20101210, end: 20120414
  2. CEREZYME [Suspect]
     Indication: GAUCHER'S DISEASE
     Dosage: UNK
     Dates: start: 20110713

REACTIONS (4)
  - RESPIRATORY DISTRESS [None]
  - SEPSIS [None]
  - MOUTH HAEMORRHAGE [None]
  - HEPATIC FUNCTION ABNORMAL [None]
